FAERS Safety Report 9716592 (Version 4)
Quarter: 2014Q1

REPORT INFORMATION
  Report Type: Report from Study
  Country: GR (occurrence: GR)
  Receive Date: 20131127
  Receipt Date: 20140311
  Transmission Date: 20141002
  Serious: Yes (Hospitalization, Other)
  Sender: FDA-Public Use
  Company Number: GR-B.I. PHARMACEUTICALS,INC./RIDGEFIELD-2013-BI-32167II

PATIENT
  Age: 65 Year
  Sex: Male
  Weight: 60 kg

DRUGS (26)
  1. BIBW 2992 [Suspect]
     Indication: METASTATIC GASTRIC CANCER
     Dosage: 40 MG
     Route: 048
     Dates: start: 20130710, end: 20131102
  2. FLUOROURACIL [Suspect]
     Indication: METASTATIC GASTRIC CANCER
     Dosage: 1300 MG
     Route: 042
     Dates: start: 20130708, end: 20131002
  3. FLUOROURACIL [Suspect]
     Route: 065
     Dates: start: 20130708, end: 20131004
  4. CISPLATIN [Suspect]
     Indication: METASTATIC GASTRIC CANCER
     Dosage: 130 MG
     Route: 042
     Dates: start: 20130708, end: 20131022
  5. OMEPRAZOLE [Concomitant]
     Indication: ABDOMINAL DISCOMFORT
     Dosage: 20 MG
     Route: 048
     Dates: start: 20130927
  6. ZYLORIC [Concomitant]
     Indication: PROPHYLAXIS
     Dosage: 300 MG
     Route: 048
     Dates: start: 20130927, end: 20131001
  7. ZYLORIC [Concomitant]
     Dosage: 300 MG
     Route: 048
     Dates: start: 20131001
  8. MICROFER [Concomitant]
     Indication: ANAEMIA
     Dosage: 150 MG
     Route: 048
     Dates: start: 20130927
  9. MICROFER [Concomitant]
     Dosage: 150 MG
     Route: 048
     Dates: start: 20131018
  10. LORACID [Concomitant]
     Indication: PAIN
     Dosage: DAILY DOSE: 3 X (400+0110)
     Route: 048
     Dates: start: 20130927
  11. MAG-2 [Concomitant]
     Indication: MUSCLE SPASMS
     Dosage: 1.5 G
     Route: 048
     Dates: start: 20130927
  12. DULCOLAX [Concomitant]
     Indication: CONSTIPATION
     Dosage: 3.335 G
     Route: 048
     Dates: start: 20130928
  13. LORDIN [Concomitant]
     Indication: ABDOMINAL DISCOMFORT
     Dosage: 20 MG
     Route: 048
     Dates: start: 20131002
  14. LORDIN [Concomitant]
     Indication: PROPHYLAXIS
     Dosage: 20 MG
     Route: 048
     Dates: start: 20131018, end: 20131101
  15. SOLURIC [Concomitant]
     Indication: PROPHYLAXIS
     Dosage: 300 MG
     Route: 048
     Dates: start: 20131018
  16. LONARID [Concomitant]
     Indication: PAIN
     Dosage: FREQUENCY AND DAILY DOSE: 3X(400+50+10) MG
     Route: 048
     Dates: start: 20131018
  17. NYSTAMYCYN [Concomitant]
     Indication: ANTIFUNGAL PROPHYLAXIS
     Dosage: ROUTE: MOUTH WASH; DAILY DOSE: 50ML/BT
     Dates: start: 20131021
  18. NAPROSYN [Concomitant]
     Indication: INFLAMMATION
     Dosage: 500 MG
     Route: 048
     Dates: start: 20131021
  19. ONDANSETRON [Concomitant]
     Indication: VOMITING
     Dosage: 8 MG
     Route: 048
     Dates: start: 20131022, end: 20131103
  20. RETACRIT [Concomitant]
     Indication: ANAEMIA
     Dosage: 40000 U
     Route: 058
     Dates: start: 20131021, end: 20131021
  21. BINOCRIT [Concomitant]
     Indication: ANAEMIA
     Dosage: 40000 U
     Route: 058
     Dates: start: 20131029, end: 20131029
  22. ALOXI [Concomitant]
     Indication: VOMITING
     Dosage: 250 MG
     Route: 042
     Dates: start: 20131022, end: 20131022
  23. DEXATON [Concomitant]
     Indication: PROPHYLAXIS
     Dosage: 8 MG
     Route: 042
     Dates: start: 20131022, end: 20131022
  24. ZANTAC [Concomitant]
     Indication: PROPHYLAXIS
     Dosage: 50 MG
     Route: 042
     Dates: start: 20131022, end: 20131022
  25. ESELAN [Concomitant]
     Indication: PROPHYLAXIS
     Dosage: 40 MG
     Route: 042
     Dates: start: 20131101
  26. CEFUROXIME [Concomitant]
     Indication: PROPHYLAXIS
     Dosage: 750 MG
     Route: 042
     Dates: start: 20131031, end: 20131101

REACTIONS (2)
  - Hypersensitivity [Recovered/Resolved]
  - Arthritis infective [Not Recovered/Not Resolved]
